FAERS Safety Report 15298552 (Version 1)
Quarter: 2018Q3

REPORT INFORMATION
  Report Type: Spontaneous
  Country: FR (occurrence: FR)
  Receive Date: 20180820
  Receipt Date: 20180820
  Transmission Date: 20181010
  Serious: Yes (Other)
  Sender: FDA-Public Use
  Company Number: FR-MUNDIPHARMA DS AND PHARMACOVIGILANCE-GBR-2015-0030164

PATIENT
  Age: 30 Year
  Sex: Female

DRUGS (6)
  1. INEXIUM                            /01479302/ [Concomitant]
     Active Substance: ESOMEPRAZOLE MAGNESIUM
     Dosage: 40 MG, UNK
     Dates: start: 20141231, end: 20150113
  2. MORPHINE [Suspect]
     Active Substance: MORPHINE
     Indication: PRODUCT USED FOR UNKNOWN INDICATION
     Dosage: UNK
     Route: 065
     Dates: start: 20141229, end: 20141231
  3. OXYNORM 50MG/ML SOLUTION INJECTABLE [Suspect]
     Active Substance: OXYCODONE HYDROCHLORIDE
     Indication: PAIN
     Dosage: 110 MG, DAILY
     Route: 065
     Dates: start: 201412, end: 20150113
  4. PARACETAMOL [Concomitant]
     Active Substance: ACETAMINOPHEN
     Dosage: 1 G, TID
     Dates: start: 20141231, end: 20150113
  5. TRACTOCILE [Concomitant]
     Active Substance: ATOSIBAN
     Dosage: 8 ML, Q1H
     Dates: start: 20141229, end: 20141230
  6. ACUPAN [Concomitant]
     Active Substance: NEFOPAM HYDROCHLORIDE
     Dosage: 100 MG, DAILY
     Dates: start: 20141231, end: 20150113

REACTIONS (2)
  - Exposure during pregnancy [Unknown]
  - Premature delivery [Unknown]

NARRATIVE: CASE EVENT DATE: 20141226
